FAERS Safety Report 8222840-3 (Version None)
Quarter: 2012Q1

REPORT INFORMATION
  Report Type: 
  Country: None (occurrence: None)
  Receive Date: 20120320
  Receipt Date: 20120312
  Transmission Date: 20120608
  Serious: Yes (Other)
  Sender: FDA-Public Use
  Company Number: US-ASTRAZENECA-2012SE16854

PATIENT
  Age: 59 Year
  Sex: Female
  Weight: 83 kg

DRUGS (21)
  1. ZYRTEC [Concomitant]
     Indication: HYPERSENSITIVITY
  2. GLIMEPIRIDE [Concomitant]
  3. ESTRADERM [Concomitant]
  4. POTASSIUM [Concomitant]
  5. PROAIR HFA [Concomitant]
     Dosage: 2 PUFFS AS NEEDED
  6. ASPIRIN [Concomitant]
  7. NEXIUM [Suspect]
     Indication: GASTROOESOPHAGEAL REFLUX DISEASE
     Route: 048
     Dates: start: 20090101, end: 20110101
  8. MECLIZINE HCL [Concomitant]
  9. SIMVASTATION [Concomitant]
  10. CLONAZEPAM [Concomitant]
  11. VITAMIN E [Concomitant]
     Dosage: 1000 UNIT 3 PILLS DAILY
  12. EXFORGE HCT [Concomitant]
     Dosage: 10-160-12.5MG ONCE A DAY
  13. TRIAMTERENE AND HYDROCHLOROTHIAZIDE [Concomitant]
     Dosage: 37.5-25MG PILL ONCE A DAY
  14. ZOFRAN ODT [Concomitant]
  15. ROLAIDS [Concomitant]
  16. ATENOLOL [Concomitant]
  17. TYLENOL [Concomitant]
  18. ADVAIR DISKUS 100/50 [Concomitant]
     Dosage: 500/50 1 PUFF EVERY 12 HOURS
  19. NEXIUM [Suspect]
     Route: 048
     Dates: start: 20110101
  20. ALBUTEROL SULFATE [Concomitant]
     Dosage: 0.083%ML AS NEEDED
  21. ESTRADERM [Concomitant]
     Dosage: 0.05MG ONE 24-HOUR PATCH TO SKIN A DAY

REACTIONS (10)
  - VERTIGO [None]
  - DEPRESSION [None]
  - VITAMIN D DEFICIENCY [None]
  - FOOT FRACTURE [None]
  - OSTEOPOROSIS [None]
  - TRANSIENT ISCHAEMIC ATTACK [None]
  - CEREBROVASCULAR ACCIDENT [None]
  - ANXIETY [None]
  - CARDIAC DISORDER [None]
  - MIGRAINE [None]
